FAERS Safety Report 4675006-8 (Version None)
Quarter: 2005Q2

REPORT INFORMATION
  Report Type: 
  Country: None (occurrence: None)
  Receive Date: 20050525
  Receipt Date: 20050518
  Transmission Date: 20051028
  Serious: No
  Sender: FDA-Public Use
  Company Number: 22664

PATIENT
  Age: 64 Year
  Sex: Female
  Weight: 49.8957 kg

DRUGS (7)
  1. NIASPAN [Suspect]
     Indication: BLOOD CHOLESTEROL INCREASED
     Dosage: 500 MG QHS PO
     Route: 048
     Dates: start: 20041201, end: 20050401
  2. ZOCOR [Suspect]
     Indication: BLOOD CHOLESTEROL INCREASED
     Dosage: 40 MG QHS PO
     Route: 048
     Dates: start: 20050101, end: 20050401
  3. VITAMIN B COMPLEX CAP [Concomitant]
  4. ULTRACET [Concomitant]
  5. HYDROCODONE [Concomitant]
  6. MOBIC [Concomitant]
  7. PROPOXYPHENE HCL [Concomitant]

REACTIONS (8)
  - ACTIVITIES OF DAILY LIVING IMPAIRED [None]
  - ARTHRALGIA [None]
  - ASTHENIA [None]
  - BONE PAIN [None]
  - CONFUSIONAL STATE [None]
  - DRUG INTERACTION [None]
  - MYALGIA [None]
  - WEIGHT DECREASED [None]
